FAERS Safety Report 15893618 (Version 1)
Quarter: 2019Q1

REPORT INFORMATION
  Report Type: Spontaneous
  Country: FR (occurrence: FR)
  Receive Date: 20190131
  Receipt Date: 20190131
  Transmission Date: 20190417
  Serious: Yes (Other)
  Sender: FDA-Public Use
  Company Number: FR-AUROBINDO-AUR-APL-2019-003631

PATIENT

DRUGS (3)
  1. IRINOTECAN [Suspect]
     Active Substance: IRINOTECAN
     Indication: ADENOCARCINOMA OF COLON
     Dosage: 340 MILLIGRAM, CYCLICAL
     Route: 042
     Dates: start: 20180718, end: 20180718
  2. OXALIPLATIN. [Suspect]
     Active Substance: OXALIPLATIN
     Indication: ADENOCARCINOMA OF COLON
     Dosage: 185 MILLIGRAM, CYCLICAL
     Route: 042
     Dates: start: 20180718, end: 20180718
  3. VECTIBIX [Concomitant]
     Active Substance: PANITUMUMAB
     Indication: ADENOCARCINOMA OF COLON
     Dosage: 580 MILLIGRAM, CYCLICAL
     Route: 042
     Dates: start: 20180718, end: 20180718

REACTIONS (2)
  - Cholinergic syndrome [Recovered/Resolved]
  - Hypersensitivity [Recovered/Resolved]

NARRATIVE: CASE EVENT DATE: 20180718
